FAERS Safety Report 8041831-9 (Version None)
Quarter: 2012Q1

REPORT INFORMATION
  Report Type: 
  Country: None (occurrence: None)
  Receive Date: 20120112
  Receipt Date: 20120110
  Transmission Date: 20120608
  Serious: Yes (Death)
  Sender: FDA-Public Use
  Company Number: US-PFIZER INC-2012007798

PATIENT
  Sex: Female
  Weight: 59 kg

DRUGS (5)
  1. NAMENDA [Concomitant]
     Dosage: UNK
  2. SUTENT [Suspect]
     Indication: CARCINOID SYNDROME
     Dosage: 37.5 MG, 1X/DAY
     Route: 048
     Dates: start: 20110101, end: 20120105
  3. COMPAZINE [Concomitant]
     Dosage: UNK, AS NEEDED
  4. TOPROL-XL [Concomitant]
     Dosage: UNK
  5. SYNTHROID [Concomitant]
     Dosage: UNK

REACTIONS (2)
  - HEPATIC FAILURE [None]
  - COAGULOPATHY [None]
